FAERS Safety Report 23668894 (Version 1)
Quarter: 2024Q1

REPORT INFORMATION
  Report Type: Spontaneous
  Country: US (occurrence: None)
  Receive Date: 20240323
  Receipt Date: 20240323
  Transmission Date: 20240410
  Serious: Yes (Hospitalization)
  Sender: FDA-Public Use
  Company Number: None

PATIENT
  Sex: Female
  Weight: 65.4 kg

DRUGS (3)
  1. FLUOROURACIL [Suspect]
     Active Substance: FLUOROURACIL
     Dates: end: 20230531
  2. LEUCOVORIN CALCIUM [Suspect]
     Active Substance: LEUCOVORIN CALCIUM
     Dates: end: 20230531
  3. ELOXATIN [Suspect]
     Active Substance: OXALIPLATIN
     Dates: end: 20230531

REACTIONS (12)
  - Enterocolitis [None]
  - Neutropenic colitis [None]
  - Nausea [None]
  - Vomiting [None]
  - Body temperature increased [None]
  - Bacteraemia [None]
  - Enterocutaneous fistula [None]
  - Abscess [None]
  - Leukocytosis [None]
  - Jugular vein thrombosis [None]
  - Dehydration [None]
  - Pancytopenia [None]

NARRATIVE: CASE EVENT DATE: 20230609
